FAERS Safety Report 5975036-X (Version None)
Quarter: 2008Q4

REPORT INFORMATION
  Report Type: 
  Country: None (occurrence: None)
  Receive Date: 20081202
  Receipt Date: 20081124
  Transmission Date: 20090506
  Serious: Yes (Other)
  Sender: FDA-Public Use
  Company Number: US-JNJFOC-20081106242

PATIENT
  Sex: Male

DRUGS (2)
  1. IBUPROFEN TABLETS [Suspect]
  2. IBUPROFEN TABLETS [Suspect]
     Indication: HEADACHE

REACTIONS (3)
  - CORONARY ARTERY BYPASS [None]
  - LUNG NEOPLASM MALIGNANT [None]
  - THYROIDECTOMY [None]
